FAERS Safety Report 21351838 (Version 1)
Quarter: 2022Q3

REPORT INFORMATION
  Report Type: Spontaneous
  Country: DK (occurrence: DK)
  Receive Date: 20220919
  Receipt Date: 20220919
  Transmission Date: 20221027
  Serious: Yes (Hospitalization)
  Sender: FDA-Public Use
  Company Number: None

PATIENT
  Age: 10 Year
  Sex: Male

DRUGS (1)
  1. PREDNISOLONE [Suspect]
     Active Substance: PREDNISOLONE
     Indication: Precursor T-lymphoblastic lymphoma/leukaemia
     Dosage: DOSAGE: UNKNOWN, STRENGTH: UNKNOWN
     Route: 065
     Dates: start: 20181228

REACTIONS (4)
  - Abdominal pain [Recovered/Resolved]
  - Duodenal ulcer perforation [Recovered/Resolved]
  - General physical health deterioration [Recovered/Resolved]
  - Colitis [Recovered/Resolved]

NARRATIVE: CASE EVENT DATE: 20190104
